FAERS Safety Report 13423930 (Version 2)
Quarter: 2019Q4

REPORT INFORMATION
  Report Type: Spontaneous
  Country: US (occurrence: US)
  Receive Date: 20170410
  Receipt Date: 20191107
  Transmission Date: 20200122
  Serious: Yes (Other)
  Sender: FDA-Public Use
  Company Number: US-PFIZER INC-2017155996

PATIENT
  Age: 69 Year
  Sex: Male

DRUGS (12)
  1. VIAGRA [Suspect]
     Active Substance: SILDENAFIL CITRATE
     Dosage: 100 MG, WEEKLY (HALF TABLET ONCE PER WEEK)
     Route: 048
     Dates: start: 20121105, end: 20131106
  2. LEVITRA [Concomitant]
     Active Substance: VARDENAFIL HYDROCHLORIDE
     Dosage: 10 MG, WEEKLY (ONE TABLET ONCE PER WEEK)
     Dates: start: 20060313, end: 20070314
  3. BABY ASPIRIN [Concomitant]
     Active Substance: ASPIRIN
     Indication: THROMBOSIS PROPHYLAXIS
     Dosage: UNK
     Dates: start: 2012
  4. LEVITRA [Concomitant]
     Active Substance: VARDENAFIL HYDROCHLORIDE
     Dosage: 20 MG, WEEKLY (HALF TABLET ONCE PER WEEK)
     Dates: start: 20090929, end: 201009
  5. BABY ASPIRIN [Concomitant]
     Active Substance: ASPIRIN
     Indication: CARDIOVASCULAR EVENT PROPHYLAXIS
  6. VIAGRA [Suspect]
     Active Substance: SILDENAFIL CITRATE
     Indication: ERECTILE DYSFUNCTION
     Dosage: UNK
     Route: 048
     Dates: start: 2000, end: 200710
  7. VIAGRA [Suspect]
     Active Substance: SILDENAFIL CITRATE
     Dosage: 100 MG, WEEKLY (HALF TABLET ONCE PER WEEK)
     Route: 048
     Dates: start: 200006, end: 20071021
  8. CIALIS [Suspect]
     Active Substance: TADALAFIL
     Dosage: 20 MG, AS NEEDED (PRN)
     Route: 048
     Dates: start: 201110, end: 201407
  9. CIALIS [Suspect]
     Active Substance: TADALAFIL
     Dosage: 100 MG, WEEKLY (HALF TABLET ONCE PER WEEK)
     Route: 048
     Dates: start: 2004, end: 2008
  10. LEVITRA [Concomitant]
     Active Substance: VARDENAFIL HYDROCHLORIDE
     Dosage: 10 MG, WEEKLY (ONE TABLET ONCE PER WEEK)
     Dates: start: 20050722, end: 20050914
  11. CIALIS [Suspect]
     Active Substance: TADALAFIL
     Indication: ERECTILE DYSFUNCTION
     Dosage: UNK
     Route: 048
     Dates: start: 20040331, end: 201406
  12. LEVITRA [Concomitant]
     Active Substance: VARDENAFIL HYDROCHLORIDE
     Indication: ERECTILE DYSFUNCTION
     Dosage: 10 MG, WEEKLY (ONE TABLET ONCE PER WEEK)
     Dates: start: 20050117, end: 20050129

REACTIONS (3)
  - Anxiety [Unknown]
  - Malignant melanoma [Unknown]
  - Emotional distress [Unknown]

NARRATIVE: CASE EVENT DATE: 20080211
